FAERS Safety Report 6874732-X (Version None)
Quarter: 2010Q3

REPORT INFORMATION
  Report Type: 
  Country: None (occurrence: None)
  Receive Date: 20100723
  Receipt Date: 20100716
  Transmission Date: 20110219
  Serious: Yes (Hospitalization, Other)
  Sender: FDA-Public Use
  Company Number: TPA2010A04155

PATIENT
  Age: 74 Year
  Sex: Female
  Weight: 74.8435 kg

DRUGS (5)
  1. ACTOS [Suspect]
     Indication: DIABETES MELLITUS
     Dosage: 45 MG, 1 IN 1 D, PER ORAL
     Route: 048
     Dates: start: 19990101
  2. LOTREL [Concomitant]
  3. GLYBURIDE [Concomitant]
  4. MECLIZINE [Concomitant]
  5. HYDROCHLOROTHIAZIDE [Concomitant]

REACTIONS (14)
  - BALANCE DISORDER [None]
  - CARDIAC FAILURE CONGESTIVE [None]
  - CHEST DISCOMFORT [None]
  - COUGH [None]
  - FALL [None]
  - FOOT FRACTURE [None]
  - FRACTURE [None]
  - HYDROCEPHALUS [None]
  - JOINT SWELLING [None]
  - NECK INJURY [None]
  - NECK PAIN [None]
  - OEDEMA PERIPHERAL [None]
  - RIB FRACTURE [None]
  - VERTIGO [None]
